FAERS Safety Report 22122210 (Version 1)
Quarter: 2023Q1

REPORT INFORMATION
  Report Type: Spontaneous
  Country: US (occurrence: None)
  Receive Date: 20230321
  Receipt Date: 20230321
  Transmission Date: 20230418
  Serious: Yes (Hospitalization)
  Sender: FDA-Public Use
  Company Number: None

PATIENT
  Age: 81 Year
  Sex: Male
  Weight: 90.6 kg

DRUGS (4)
  1. IRON SUCROSE [Suspect]
     Active Substance: IRON SUCROSE
     Indication: Iron deficiency anaemia
     Dates: start: 20230316, end: 20230316
  2. IRON SUCROSE [Suspect]
     Active Substance: IRON SUCROSE
     Indication: Iron deficiency anaemia
     Dates: start: 20230316, end: 20230316
  3. ACETAMINOPHEN [Concomitant]
     Active Substance: ACETAMINOPHEN
     Dates: start: 20230316, end: 20230316
  4. DIPHENHYDRAMINE [Concomitant]
     Active Substance: DIPHENHYDRAMINE
     Dates: start: 20230316, end: 20230316

REACTIONS (4)
  - Tachycardia [None]
  - Infusion related reaction [None]
  - Atrial fibrillation [None]
  - Therapy cessation [None]

NARRATIVE: CASE EVENT DATE: 20230316
